FAERS Safety Report 7963119-4 (Version None)
Quarter: 2011Q4

REPORT INFORMATION
  Report Type: 
  Country: None (occurrence: None)
  Receive Date: 20111207
  Receipt Date: 20111205
  Transmission Date: 20120403
  Serious: Yes (Death)
  Sender: FDA-Public Use
  Company Number: CA-ROCHE-1017690

PATIENT
  Sex: Male
  Weight: 102.15 kg

DRUGS (6)
  1. LABETALOL HCL [Concomitant]
  2. AVASTIN [Suspect]
     Indication: GLIOBLASTOMA MULTIFORME
     Route: 042
     Dates: start: 20111018, end: 20111104
  3. ZANTAC [Concomitant]
  4. LORAZEPAM [Concomitant]
  5. AVASTIN [Suspect]
     Route: 042
     Dates: start: 20111104
  6. AMLODIPINE [Concomitant]

REACTIONS (1)
  - DISEASE PROGRESSION [None]
